FAERS Safety Report 17778134 (Version 1)
Quarter: 2020Q2

REPORT INFORMATION
  Report Type: Spontaneous
  Country: US (occurrence: US)
  Receive Date: 20200513
  Receipt Date: 20200513
  Transmission Date: 20200714
  Serious: Yes (Hospitalization, Other)
  Sender: FDA-Public Use
  Company Number: US-009507513-2005USA002778

PATIENT
  Age: 50 Year
  Sex: Male

DRUGS (1)
  1. TEMODAR [Suspect]
     Active Substance: TEMOZOLOMIDE
     Indication: CENTRAL NERVOUS SYSTEM NEOPLASM
     Dosage: 400 MILLIGRAM, QD
     Route: 048

REACTIONS (2)
  - Renal failure [Unknown]
  - Product use in unapproved indication [Unknown]
